FAERS Safety Report 10244100 (Version 3)
Quarter: 2014Q3

REPORT INFORMATION
  Report Type: Spontaneous
  Country: JP (occurrence: JP)
  Receive Date: 20140618
  Receipt Date: 20140812
  Transmission Date: 20150326
  Serious: Yes (Hospitalization, Other)
  Sender: FDA-Public Use
  Company Number: PHHY2014JP075378

PATIENT
  Age: 75 Year
  Sex: Female

DRUGS (15)
  1. ZOMETA [Suspect]
     Active Substance: ZOLEDRONIC ACID
     Indication: METASTASES TO BONE
     Dosage: 3 MG, PER 75 ML
     Route: 041
     Dates: start: 20131121
  2. CHEMOTHERAPEUTICS [Concomitant]
     Active Substance: UNSPECIFIED INGREDIENT
     Dosage: UNK UKN, UNK
     Dates: start: 201209
  3. ZANTAC [Concomitant]
     Active Substance: RANITIDINE HYDROCHLORIDE
     Dosage: 150 MG, UNK
     Route: 048
  4. JUVELA N [Concomitant]
     Active Substance: TOCOPHERYL NICOTINATE, D-.ALPHA.
     Dosage: 400 MG, UNK
     Route: 048
  5. IRESSA [Concomitant]
     Active Substance: GEFITINIB
     Dosage: 250 MG, UNK
     Route: 048
     Dates: start: 20131119
  6. NEXIUM [Concomitant]
     Active Substance: ESOMEPRAZOLE MAGNESIUM
     Dosage: 20 MG, UNK
     Route: 048
  7. ZOMETA [Suspect]
     Active Substance: ZOLEDRONIC ACID
     Dosage: 4 MG, PER 100 ML
     Route: 041
     Dates: start: 20131211
  8. CALONAL [Suspect]
     Active Substance: ACETAMINOPHEN
     Dosage: 200 MG, DAILY
     Route: 048
     Dates: start: 201312, end: 201405
  9. NATRIX [Concomitant]
     Active Substance: INDAPAMIDE
     Dosage: 2 MG, UNK
     Route: 048
  10. LIVALO [Concomitant]
     Active Substance: PITAVASTATIN CALCIUM
     Dosage: 2 MG, UNK
     Route: 048
  11. UNISIA COMBINATION [Concomitant]
     Dosage: 1 DF, UNK
     Route: 048
  12. ZOMETA [Suspect]
     Active Substance: ZOLEDRONIC ACID
     Dosage: 3 MG, PER 75 ML
     Route: 041
     Dates: start: 20140402, end: 20140402
  13. KREMEZIN [Concomitant]
     Active Substance: ACTIVATED CHARCOAL
     Dosage: 6 G, UNK
     Route: 048
  14. ASPARA-CA [Concomitant]
     Active Substance: CALCIUM ASPARTATE
     Dosage: 600 MG, UNK
     Route: 048
  15. VOLTAREN [Concomitant]
     Active Substance: DICLOFENAC SODIUM
     Dosage: UNK UKN, UNK
     Route: 061

REACTIONS (3)
  - Nephrogenic anaemia [Unknown]
  - Liver disorder [Unknown]
  - Tubulointerstitial nephritis [Unknown]

NARRATIVE: CASE EVENT DATE: 20131202
